FAERS Safety Report 14825929 (Version 2)
Quarter: 2018Q2

REPORT INFORMATION
  Report Type: Spontaneous
  Country: US (occurrence: US)
  Receive Date: 20180430
  Receipt Date: 20180503
  Transmission Date: 20180711
  Serious: No
  Sender: FDA-Public Use
  Company Number: US-PFIZER INC-2018172106

PATIENT
  Age: 78 Year
  Sex: Male
  Weight: 86.17 kg

DRUGS (1)
  1. LYRICA [Suspect]
     Active Substance: PREGABALIN
     Indication: NEUROPATHY PERIPHERAL
     Dosage: 200 MG, 2X/DAY, (100 MG 2 CAPSULES TWICE A DAY BY MOUTH)
     Route: 048
     Dates: start: 201802

REACTIONS (1)
  - Weight increased [Not Recovered/Not Resolved]
